FAERS Safety Report 8947894 (Version 2)
Quarter: 2012Q4

REPORT INFORMATION
  Report Type: 
  Country: US (occurrence: US)
  Receive Date: 20121204
  Receipt Date: 20121221
  Transmission Date: 20130627
  Serious: Yes (Death, Hospitalization)
  Sender: FDA-Public Use
  Company Number: US-INCYTE CORPORATION-2012IN002471

PATIENT
  Age: 76 Year
  Sex: Male

DRUGS (18)
  1. JAKAFI [Suspect]
     Indication: MYELOFIBROSIS
     Dosage: 15 mg, bid
     Route: 048
     Dates: end: 20121110
  2. JAKAFI [Suspect]
     Dosage: 15 mg, bid
     Route: 048
     Dates: start: 201211
  3. PREDNISONE [Concomitant]
     Dosage: 100 mg, qd
  4. HYDREA [Concomitant]
     Dosage: 1000 mg, qd
  5. ASPIRIN [Concomitant]
     Dosage: 81 mg, qd
  6. DIOVAN [Concomitant]
     Dosage: 80 mg, qd
  7. GLIPIZIDE [Concomitant]
     Dosage: 10 mg, qd
  8. LANTUS [Concomitant]
     Dosage: 18 ut, qhs
  9. PRAVASTATIN [Concomitant]
     Dosage: 20 mg, qd
  10. OMEPRAZOLE [Concomitant]
     Dosage: 20 mg, qd
  11. ALLOPURINOL [Concomitant]
     Dosage: 150 mg, qhs
  12. AMBIEN [Concomitant]
     Dosage: 10 mg, qhs
  13. REMERON [Concomitant]
     Dosage: 30 mg, qhs
  14. PERCOCET [Concomitant]
     Dosage: 5/325 mg, qd
  15. HYDROXYZINE [Concomitant]
     Indication: PRURITUS
     Dosage: 25 mg, prn
  16. NIACIN [Concomitant]
     Dosage: 2 mg, qd
  17. FISH OIL [Concomitant]
     Dosage: 1 g, UNK
  18. XANAX [Concomitant]
     Dosage: 1 mg, bid

REACTIONS (2)
  - Post procedural complication [Fatal]
  - Aortic valve replacement [Unknown]
